FAERS Safety Report 10380321 (Version 1)
Quarter: 2014Q1

REPORT INFORMATION
  Report Type: Spontaneous
  Country: US (occurrence: None)
  Receive Date: 20140306
  Receipt Date: 20140306
  Transmission Date: 20141002
  Serious: Yes (Other)
  Sender: FDA-Public Use
  Company Number: 163-21880-13062110

PATIENT
  Age: 65 Year
  Sex: Female

DRUGS (13)
  1. REVLIMID (LENALIDOMIDE) (10 MILLIGRAM, CAPSULES) [Suspect]
     Indication: PLASMA CELL MYELOMA
     Route: 048
     Dates: start: 20130131, end: 2013
  2. COUMADIN (WARFARIN SODIUM) (UNKNOWN) [Suspect]
     Indication: ANTICOAGULANT THERAPY
     Route: 048
  3. DEXAMETHASONE [Concomitant]
  4. CHROMIUM [Concomitant]
  5. HYDROCHLOROTHIAZIDE [Concomitant]
  6. HYDROCODONE/ACETAMINOPHEN (VICODIN) (REMEDEINE) [Concomitant]
  7. LOSARTAN [Concomitant]
  8. VITAMIN B-12 (CYANOCOBALAMIN) [Concomitant]
  9. WARFARIN [Concomitant]
  10. VITAMIN D (ERGOCALCIFEROL) [Concomitant]
  11. OMEPRAZOLE [Concomitant]
  12. VELCADE (BORTEZOMIB) [Concomitant]
  13. ACYCLOVIR (ACICLOVIR) [Concomitant]

REACTIONS (11)
  - Gastritis [None]
  - Nervousness [None]
  - Drug dose omission [None]
  - Epigastric discomfort [None]
  - Bronchitis [None]
  - Fatigue [None]
  - Abdominal discomfort [None]
  - Diarrhoea [None]
  - Nausea [None]
  - Therapeutic response decreased [None]
  - Neuropathy peripheral [None]
